FAERS Safety Report 5209741-X (Version None)
Quarter: 2007Q1

REPORT INFORMATION
  Report Type: 
  Country: None (occurrence: None)
  Receive Date: 20070116
  Receipt Date: 20070102
  Transmission Date: 20070707
  Serious: Yes (Hospitalization)
  Sender: FDA-Public Use
  Company Number: DE-PFIZER INC-2005068764

PATIENT
  Age: 59 Year
  Sex: Female

DRUGS (4)
  1. NORVASC [Suspect]
     Indication: HYPERTENSION
     Dosage: DAILY DOSE:5MG-FREQ:DAILY
     Route: 048
  2. VENLAFAXINE HCL [Suspect]
     Indication: DEPRESSION
     Dosage: DAILY DOSE:225MG-FREQ:DAILY
     Route: 048
     Dates: start: 20041026, end: 20041115
  3. CAPTOGAMMA [Suspect]
     Indication: ILL-DEFINED DISORDER
     Dosage: DAILY DOSE:100MG-FREQ:DAILY
     Route: 048
  4. HCT ^KIMIA FARMA^ [Concomitant]
     Dosage: FREQ:UNKNOWN
     Route: 048

REACTIONS (2)
  - DEPRESSION [None]
  - TREMOR [None]
